FAERS Safety Report 10665264 (Version 3)
Quarter: 2015Q2

REPORT INFORMATION
  Report Type: Report from Study
  Country: GB (occurrence: GB)
  Receive Date: 20141219
  Receipt Date: 20150422
  Transmission Date: 20150821
  Serious: Yes (Other)
  Sender: FDA-Public Use
  Company Number: GB-BAYER-2014-184453

PATIENT
  Age: 60 Year
  Sex: Female

DRUGS (2)
  1. BACLOFEN. [Suspect]
     Active Substance: BACLOFEN
     Indication: ARTHRALGIA
     Dosage: UNK
  2. BETAFERON [Suspect]
     Active Substance: INTERFERON BETA-1B
     Indication: MULTIPLE SCLEROSIS
     Dosage: 250 ?G, QOD
     Route: 058

REACTIONS (9)
  - Cartilage injury [None]
  - Arthropathy [None]
  - Arthralgia [None]
  - Nasopharyngitis [Not Recovered/Not Resolved]
  - Gait disturbance [None]
  - Incorrect dose administered by device [None]
  - Muscle spasms [None]
  - Muscle spasms [None]
  - Paraspinal abscess [Recovered/Resolved]

NARRATIVE: CASE EVENT DATE: 20141208
